FAERS Safety Report 22254767 (Version 1)
Quarter: 2023Q2

REPORT INFORMATION
  Report Type: Spontaneous
  Country: IT (occurrence: IT)
  Receive Date: 20230426
  Receipt Date: 20230426
  Transmission Date: 20230721
  Serious: Yes (Death, Other)
  Sender: FDA-Public Use
  Company Number: IT-GILEAD-2023-0625793

PATIENT
  Age: 34 Year
  Sex: Female

DRUGS (1)
  1. YESCARTA [Suspect]
     Active Substance: AXICABTAGENE CILOLEUCEL
     Indication: Product used for unknown indication
     Dosage: TOTAL DOSE INFUSED (MILLIONS OF CAR-POSITIVE VIABLE T CELLS) 200000000
     Route: 065
     Dates: start: 20221103, end: 20221103

REACTIONS (3)
  - Death [Fatal]
  - Nervous system disorder [Unknown]
  - Cytokine release syndrome [Unknown]

NARRATIVE: CASE EVENT DATE: 20230330
